FAERS Safety Report 22019814 (Version 5)
Quarter: 2023Q2

REPORT INFORMATION
  Report Type: Report from Study
  Country: US (occurrence: US)
  Receive Date: 20230222
  Receipt Date: 20230626
  Transmission Date: 20230722
  Serious: Yes (Other)
  Sender: FDA-Public Use
  Company Number: US-002147023-NVSC2023US036312

PATIENT
  Sex: Female

DRUGS (2)
  1. KISQALI [Suspect]
     Active Substance: RIBOCICLIB
     Indication: Breast cancer female
     Dosage: 600 MG, QD
     Route: 048
  2. KISQALI [Suspect]
     Active Substance: RIBOCICLIB
     Dosage: 600 MG, TID
     Route: 048

REACTIONS (18)
  - Metastases to spine [Unknown]
  - Hallucination [Unknown]
  - Bipolar disorder [Unknown]
  - Depression suicidal [Unknown]
  - Feeling jittery [Unknown]
  - Radiation injury [Unknown]
  - Weight decreased [Unknown]
  - Taste disorder [Unknown]
  - Skin odour abnormal [Unknown]
  - Arthralgia [Unknown]
  - Decreased appetite [Unknown]
  - Alopecia [Unknown]
  - Constipation [Unknown]
  - White blood cell count decreased [Unknown]
  - Back pain [Unknown]
  - Product packaging difficult to open [Unknown]
  - Anxiety [Unknown]
  - Depression [Unknown]
